FAERS Safety Report 6695364-2 (Version None)
Quarter: 2010Q2

REPORT INFORMATION
  Report Type: 
  Country: None (occurrence: None)
  Receive Date: 20100423
  Receipt Date: 20100423
  Transmission Date: 20101027
  Serious: Yes (Hospitalization)
  Sender: FDA-Public Use
  Company Number: None

PATIENT
  Age: 58 Year
  Sex: Female
  Weight: 63.63 kg

DRUGS (20)
  1. PLAVIX [Suspect]
     Indication: CORONARY ARTERY DISEASE
     Dosage: 75 MG DAILY PO CHRONIC
     Route: 048
  2. ASPIRIN [Suspect]
     Indication: CORONARY ARTERY DISEASE
     Dosage: 81 MG QHS PO CHRONIC
     Route: 048
  3. M.V.I. [Concomitant]
  4. CALCIUM [Concomitant]
  5. EXFORGE [Concomitant]
  6. SYNTHROID [Concomitant]
  7. CYMBALTA [Concomitant]
  8. CARVEDILOL [Concomitant]
  9. HYDROCODONE BITARTRATE AND ACETAMINOPHEN [Concomitant]
  10. PRAVASTATIN [Concomitant]
  11. ZYRTEC [Concomitant]
  12. OMEPRAZOLE [Concomitant]
  13. SINGULAIR [Concomitant]
  14. HYDROXYZINE [Concomitant]
  15. CELEBREX [Concomitant]
  16. AMBIEN [Concomitant]
  17. PREDNISONE [Concomitant]
  18. ALPRAZOLAM [Concomitant]
  19. VENTOLIN [Concomitant]
  20. FIORICET [Concomitant]

REACTIONS (6)
  - DUODENAL ULCER [None]
  - GASTRIC ULCER [None]
  - HAEMATEMESIS [None]
  - HAEMATOCRIT DECREASED [None]
  - HAEMOGLOBIN DECREASED [None]
  - OESOPHAGITIS [None]
